FAERS Safety Report 23284570 (Version 1)
Quarter: 2023Q4

REPORT INFORMATION
  Report Type: Spontaneous
  Country: IT (occurrence: IT)
  Receive Date: 20231211
  Receipt Date: 20231211
  Transmission Date: 20240110
  Serious: Yes (Other)
  Sender: FDA-Public Use
  Company Number: None

PATIENT
  Age: 48 Year
  Sex: Female

DRUGS (2)
  1. XELJANZ [Suspect]
     Active Substance: TOFACITINIB CITRATE
     Indication: Inflammatory bowel disease
     Dosage: 10 MG, 1X/DAY
     Route: 048
     Dates: start: 20220914, end: 20230328
  2. XELJANZ [Suspect]
     Active Substance: TOFACITINIB CITRATE
     Indication: Spondylitis

REACTIONS (2)
  - Drug ineffective [Recovered/Resolved]
  - Joint stiffness [Recovered/Resolved]

NARRATIVE: CASE EVENT DATE: 20230201
